FAERS Safety Report 20076007 (Version 2)
Quarter: 2021Q4

REPORT INFORMATION
  Report Type: Spontaneous
  Country: JP (occurrence: None)
  Receive Date: 20211116
  Receipt Date: 20211230
  Transmission Date: 20220303
  Serious: Yes (Hospitalization)
  Sender: FDA-Public Use
  Company Number: JP-ROCHE-2955308

PATIENT
  Sex: Female

DRUGS (5)
  1. VALGANCICLOVIR [Suspect]
     Active Substance: VALGANCICLOVIR
     Indication: Cytomegalovirus enterocolitis
     Dosage: 450 MG
     Route: 048
     Dates: start: 20210925, end: 20211008
  2. GANCICLOVIR [Suspect]
     Active Substance: GANCICLOVIR
     Indication: Cytomegalovirus enterocolitis
     Route: 041
     Dates: start: 20210903, end: 20210909
  3. FOSCAVIR [Concomitant]
     Active Substance: FOSCARNET SODIUM
     Route: 065
     Dates: start: 20210910, end: 20210924
  4. PREDONINE [Concomitant]
     Active Substance: PREDNISOLONE
  5. AZATHIOPRINE [Concomitant]
     Active Substance: AZATHIOPRINE

REACTIONS (2)
  - White blood cell count decreased [Unknown]
  - Anaemia [Unknown]
